FAERS Safety Report 4958468-8 (Version None)
Quarter: 2006Q1

REPORT INFORMATION
  Report Type: 
  Country: None (occurrence: None)
  Receive Date: 20060330
  Receipt Date: 20060306
  Transmission Date: 20060701
  Serious: Yes (Death)
  Sender: FDA-Public Use
  Company Number: US-ABBOTT-06P-163-0327261-00

PATIENT
  Age: 56 Year
  Sex: Male

DRUGS (4)
  1. RITONAVIR SOFT GELATIN CAPSULES [Suspect]
     Indication: HIV INFECTION
     Route: 048
  2. RITONAVIR SOFT GELATIN CAPSULES [Suspect]
     Indication: SYSTEMIC ANTIVIRAL TREATMENT
  3. APTIVUS [Suspect]
     Indication: HIV INFECTION
     Route: 048
  4. APTIVUS [Suspect]
     Indication: SYSTEMIC ANTIVIRAL TREATMENT

REACTIONS (2)
  - COMPLETED SUICIDE [None]
  - OVERDOSE [None]
